FAERS Safety Report 8827665 (Version 2)
Quarter: 2012Q4

REPORT INFORMATION
  Report Type: 
  Country: JP (occurrence: JP)
  Receive Date: 20121005
  Receipt Date: 20121012
  Transmission Date: 20130627
  Serious: Yes (Other)
  Sender: FDA-Public Use
  Company Number: JP-ASTRAZENECA-2012SE75300

PATIENT
  Age: 82 Year
  Sex: Male

DRUGS (8)
  1. ANAPEINE [Suspect]
     Indication: EPIDURAL ANAESTHESIA
     Dosage: 2 mg/ ml, 4.0 mL/hr
     Route: 008
  2. ANAPEINE [Suspect]
     Indication: EPIDURAL ANAESTHESIA
     Dosage: 2 mg/ ml,reduced dose 2.0 ml/h
     Route: 008
  3. ANAPEINE [Suspect]
     Indication: EPIDURAL ANAESTHESIA
     Dosage: 2 mg/ ml
     Route: 008
  4. PROPOFOL [Concomitant]
     Indication: INDUCTION OF ANAESTHESIA
     Dosage: Dose unknown
     Route: 042
  5. SEVOFLURANE [Concomitant]
     Indication: MAINTENANCE OF ANAESTHESIA
     Dosage: Dose unknown
     Route: 055
  6. REMIFENTANIL HYDROCHLORIDE [Concomitant]
     Indication: MAINTENANCE OF ANAESTHESIA
     Dosage: Dose unknown
     Route: 042
  7. FENTANYL [Concomitant]
     Indication: EPIDURAL ANAESTHESIA
     Dosage: 10 mcg/hr
     Route: 008
  8. CLOPIDOGREL SULFATE [Concomitant]
     Dosage: Dose unknown
     Route: 048

REACTIONS (1)
  - Spinal cord infarction [Recovering/Resolving]
